FAERS Safety Report 20469840 (Version 1)
Quarter: 2022Q1

REPORT INFORMATION
  Report Type: Report from Study
  Country: JP (occurrence: JP)
  Receive Date: 20220214
  Receipt Date: 20220214
  Transmission Date: 20220423
  Serious: Yes (Death, Hospitalization, Other)
  Sender: FDA-Public Use
  Company Number: JP-JNJFOC-A-CH2018-170959

PATIENT
  Age: 72 Year
  Sex: Female
  Weight: 44.3 kg

DRUGS (41)
  1. UPTRAVI [Suspect]
     Active Substance: SELEXIPAG
     Indication: Pulmonary arterial hypertension
     Dosage: 1.0 MG, BID
     Route: 048
     Dates: start: 20170920, end: 20180404
  2. UPTRAVI [Suspect]
     Active Substance: SELEXIPAG
     Dosage: 0.2 MG, BID
     Route: 048
     Dates: start: 20170609, end: 20170615
  3. UPTRAVI [Suspect]
     Active Substance: SELEXIPAG
     Dosage: 0.4 MG, BID
     Route: 048
     Dates: start: 20170616, end: 20170629
  4. UPTRAVI [Suspect]
     Active Substance: SELEXIPAG
     Dosage: 0.6 MG, BID
     Route: 048
     Dates: start: 20170630, end: 20170808
  5. UPTRAVI [Suspect]
     Active Substance: SELEXIPAG
     Dosage: 0.8 MG, BID
     Route: 048
     Dates: start: 20170809, end: 20170919
  6. UPTRAVI [Suspect]
     Active Substance: SELEXIPAG
     Dosage: END DATE: 15/JUN/2019
     Route: 048
     Dates: start: 20180405
  7. TRACLEER [Concomitant]
     Active Substance: BOSENTAN
     Indication: Pulmonary arterial hypertension
     Dosage: 125 MG, QD
     Dates: end: 20180404
  8. TRACLEER [Concomitant]
     Active Substance: BOSENTAN
     Dosage: 250 MG, QD
     Dates: start: 20180405
  9. PREDNISOLONE [Concomitant]
     Active Substance: PREDNISOLONE
     Dosage: 3 MG, QD
     Dates: end: 20181003
  10. PREDNISOLONE [Concomitant]
     Active Substance: PREDNISOLONE
     Dosage: 10 MG, QD
     Dates: start: 20181004
  11. ENALAPRIL [Concomitant]
     Active Substance: ENALAPRIL
     Dosage: 2.5 MG, QD
     Dates: end: 20170712
  12. WARFARIN [Concomitant]
     Active Substance: WARFARIN
     Indication: Aortic valve incompetence
     Dosage: 2.5 MG, QD
     Dates: end: 20180306
  13. WARFARIN [Concomitant]
     Active Substance: WARFARIN
     Dosage: 1.5 MG, QD
     Dates: start: 20180309, end: 20180822
  14. WARFARIN [Concomitant]
     Active Substance: WARFARIN
     Dosage: 1 MG, QD
     Dates: start: 20180823, end: 20181106
  15. WARFARIN [Concomitant]
     Active Substance: WARFARIN
     Dosage: 1.5 MG, QD
     Dates: start: 20181107
  16. LASIX [Concomitant]
     Active Substance: FUROSEMIDE
     Indication: Chronic kidney disease
     Dosage: 20 MG, QD
     Dates: end: 20180117
  17. LASIX [Concomitant]
     Active Substance: FUROSEMIDE
     Dosage: 20 MG, QD
     Dates: start: 20180118, end: 20180307
  18. ALFACALCIDOL [Concomitant]
     Active Substance: ALFACALCIDOL
     Indication: Osteoporosis
     Dosage: 0.25 UG, QD
     Dates: start: 20171118, end: 20180117
  19. ALFACALCIDOL [Concomitant]
     Active Substance: ALFACALCIDOL
     Dosage: 0.25 UG, QD
  20. FEBUXOSTAT [Concomitant]
     Active Substance: FEBUXOSTAT
     Indication: Gout
     Dosage: 20 MG, QD
     Dates: start: 20171118, end: 20180902
  21. FEBUXOSTAT [Concomitant]
     Active Substance: FEBUXOSTAT
     Dosage: 30 MG, QD
     Dates: start: 20180903
  22. CALCIUM POLYSTYRENE SULFONATE [Concomitant]
     Active Substance: CALCIUM POLYSTYRENE SULFONATE
     Indication: Chronic kidney disease
     Dosage: 25 G, QD
     Dates: start: 20171118, end: 20180117
  23. CALCIUM POLYSTYRENE SULFONATE [Concomitant]
     Active Substance: CALCIUM POLYSTYRENE SULFONATE
     Dosage: 25 MG, QD
     Dates: start: 20180830
  24. OMEPRAZOLE [Concomitant]
     Active Substance: OMEPRAZOLE
     Dosage: 20 MG, QD
     Dates: start: 20171118, end: 20180117
  25. OMEPRAZOLE [Concomitant]
     Active Substance: OMEPRAZOLE
     Dosage: 20 MG, QD
     Dates: start: 20180830
  26. MAGNESIUM OXIDE [Concomitant]
     Active Substance: MAGNESIUM OXIDE
     Dosage: 990 MG, QD
     Dates: start: 20171125, end: 20180117
  27. FUROSEMIDE [Concomitant]
     Active Substance: FUROSEMIDE
     Indication: Chronic kidney disease
     Dosage: 20 MG, QD
     Dates: start: 20171203, end: 20171204
  28. HEPARIN [Concomitant]
     Active Substance: HEPARIN SODIUM
     Dosage: 12 ML, QD
     Dates: start: 20171118, end: 20171124
  29. SPIRONOLACTONE [Concomitant]
     Active Substance: SPIRONOLACTONE
     Dosage: 25 MG, QD
     Dates: start: 20180307, end: 20180705
  30. AZOSEMIDE [Concomitant]
     Active Substance: AZOSEMIDE
     Indication: Chronic kidney disease
     Dosage: 30 MG, QD
     Dates: start: 20171224, end: 20180117
  31. AZOSEMIDE [Concomitant]
     Active Substance: AZOSEMIDE
     Dosage: 60 MG, QD
     Dates: start: 20180118, end: 20180502
  32. AZOSEMIDE [Concomitant]
     Active Substance: AZOSEMIDE
     Dosage: 30 MG, QD
     Dates: start: 20180503, end: 20180725
  33. AZOSEMIDE [Concomitant]
     Active Substance: AZOSEMIDE
     Dosage: 60 MG, QD
     Dates: start: 20180726
  34. SAMSCA [Concomitant]
     Active Substance: TOLVAPTAN
     Indication: Chronic kidney disease
     Dosage: 3.75 MG, QD
     Dates: start: 20171227, end: 20180106
  35. SAMSCA [Concomitant]
     Active Substance: TOLVAPTAN
     Dosage: 7.5 MG, QD
     Dates: start: 20180914
  36. KREMEZIN [Concomitant]
     Active Substance: ACTIVATED CHARCOAL
     Indication: Chronic kidney disease
     Dosage: 1500 MG, QD
  37. TRICHLORMETHIAZIDE [Concomitant]
     Active Substance: TRICHLORMETHIAZIDE
     Indication: Pulmonary arterial hypertension
     Dosage: 4 MG, QD
     Dates: start: 20180503
  38. CALCIUM CARBONATE\CHOLECALCIFEROL\MAGNESIUM CARBONATE [Concomitant]
     Active Substance: CALCIUM CARBONATE\CHOLECALCIFEROL\MAGNESIUM CARBONATE
     Indication: Chronic kidney disease
     Dosage: 1 DF, QD
     Dates: start: 20190206
  39. SENNOSIDES [Concomitant]
     Active Substance: SENNOSIDES
     Indication: Constipation
     Dosage: 12 MG, QD
     Dates: start: 20190403
  40. SODIUM PICOSULFATE [Concomitant]
     Active Substance: SODIUM PICOSULFATE
     Indication: Constipation
     Dosage: UNK
     Dates: start: 20180910
  41. SPIRONOLACTONE [Concomitant]
     Active Substance: SPIRONOLACTONE
     Indication: Chronic kidney disease
     Dosage: 12.5 MG, QD
     Dates: start: 20180903

REACTIONS (14)
  - Cachexia [Fatal]
  - Hypothyroidism [Not Recovered/Not Resolved]
  - Renal impairment [Not Recovered/Not Resolved]
  - Condition aggravated [Not Recovered/Not Resolved]
  - Pulmonary arterial hypertension [Not Recovered/Not Resolved]
  - Right ventricular failure [Recovering/Resolving]
  - Low cardiac output syndrome [Recovered/Resolved]
  - Ascites [Not Recovered/Not Resolved]
  - Osteoporosis [Unknown]
  - Diarrhoea infectious [Recovered/Resolved]
  - Upper respiratory tract inflammation [Recovered/Resolved]
  - Rectal prolapse [Recovered/Resolved]
  - Contusion [Recovered/Resolved]
  - Constipation [Not Recovered/Not Resolved]

NARRATIVE: CASE EVENT DATE: 20171001
